FAERS Safety Report 16988547 (Version 1)
Quarter: 2019Q4

REPORT INFORMATION
  Report Type: Spontaneous
  Country: BR (occurrence: BR)
  Receive Date: 20191104
  Receipt Date: 20191104
  Transmission Date: 20200122
  Serious: Yes (Hospitalization, Other)
  Sender: FDA-Public Use
  Company Number: BR-ROCHE-2456553

PATIENT
  Age: 51 Year

DRUGS (10)
  1. PIPERACILLIN. [Concomitant]
     Active Substance: PIPERACILLIN SODIUM
  2. HERCEPTIN [Suspect]
     Active Substance: TRASTUZUMAB
     Indication: BREAST CANCER
     Dosage: TCHP (TAXOTERE+ CARBOPLATIN + HERCEPTIN + PERJETA) IS A CHEMOTHERAPY REGIMEN FOR BREAST CANCER
     Route: 065
     Dates: start: 201905
  3. DOCETAXEL. [Suspect]
     Active Substance: DOCETAXEL
     Indication: BREAST CANCER
     Route: 065
     Dates: start: 201905
  4. LOPERAMIDE [Suspect]
     Active Substance: LOPERAMIDE
     Indication: PRODUCT USED FOR UNKNOWN INDICATION
     Route: 065
  5. CARBOPLATIN. [Suspect]
     Active Substance: CARBOPLATIN
     Indication: BREAST CANCER
     Route: 065
     Dates: start: 201905
  6. PERJETA [Suspect]
     Active Substance: PERTUZUMAB
     Indication: BREAST CANCER
     Dosage: TCHP
     Route: 065
     Dates: start: 201905
  7. PERJETA [Suspect]
     Active Substance: PERTUZUMAB
     Route: 065
     Dates: start: 201909
  8. TAZOBACTAM [Concomitant]
     Active Substance: TAZOBACTAM
  9. HERCEPTIN [Suspect]
     Active Substance: TRASTUZUMAB
     Route: 065
     Dates: start: 201909
  10. ACYCLOVIR [ACICLOVIR] [Concomitant]
     Active Substance: ACYCLOVIR

REACTIONS (10)
  - White blood cell count decreased [Unknown]
  - Odynophagia [Unknown]
  - Bone marrow toxicity [Unknown]
  - Febrile neutropenia [Unknown]
  - Diarrhoea [Unknown]
  - Fatigue [Unknown]
  - Mucosal inflammation [Unknown]
  - Drug intolerance [Unknown]
  - Herpes simplex pharyngitis [Unknown]
  - Anaemia [Unknown]
